FAERS Safety Report 16799280 (Version 1)
Quarter: 2019Q3

REPORT INFORMATION
  Report Type: Spontaneous
  Country: AU (occurrence: AU)
  Receive Date: 20190912
  Receipt Date: 20190912
  Transmission Date: 20191005
  Serious: Yes (Hospitalization, Other)
  Sender: FDA-Public Use
  Company Number: AU-MYLANLABS-2019M1084718

PATIENT
  Age: 15 Year
  Sex: Male

DRUGS (2)
  1. AKAMIN 50 [Suspect]
     Active Substance: MINOCYCLINE HYDROCHLORIDE
     Indication: PRODUCT USED FOR UNKNOWN INDICATION
     Dosage: 50 MILLIGRAM
     Dates: start: 20190801, end: 20190902
  2. DOXYLIN 100 [Suspect]
     Active Substance: DOXYCYCLINE
     Indication: PRODUCT USED FOR UNKNOWN INDICATION
     Dosage: 100 MILLIGRAM
     Dates: start: 20190627, end: 201907

REACTIONS (8)
  - Heart rate increased [Unknown]
  - Suicide attempt [Unknown]
  - Mood swings [Unknown]
  - Decreased appetite [Unknown]
  - Asthenia [Not Recovered/Not Resolved]
  - Overdose [Unknown]
  - Intentional self-injury [Unknown]
  - Panic attack [Unknown]

NARRATIVE: CASE EVENT DATE: 2019
